FAERS Safety Report 4699330-8 (Version None)
Quarter: 2005Q2

REPORT INFORMATION
  Report Type: 
  Country: None (occurrence: None)
  Receive Date: 20050624
  Receipt Date: 20050615
  Transmission Date: 20051028
  Serious: Yes (Other)
  Sender: FDA-Public Use
  Company Number: GB-GLAXOSMITHKLINE-B0384604A

PATIENT
  Age: 49 Year
  Sex: Male

DRUGS (2)
  1. ZYBAN [Suspect]
     Indication: SMOKING CESSATION THERAPY
     Dosage: 150MG PER DAY
     Route: 048
     Dates: start: 20050426, end: 20050527
  2. IBUPROFEN [Concomitant]
     Indication: BURSITIS
     Dosage: 400MG PER DAY
     Route: 048

REACTIONS (3)
  - ORTHOPNOEA [None]
  - PALPITATIONS [None]
  - SLEEP DISORDER [None]
